FAERS Safety Report 7421906-5 (Version None)
Quarter: 2011Q2

REPORT INFORMATION
  Report Type: 
  Country: None (occurrence: None)
  Receive Date: 20110418
  Receipt Date: 20110405
  Transmission Date: 20111010
  Serious: No
  Sender: FDA-Public Use
  Company Number: NL-ELI_LILLY_AND_COMPANY-NL201103005734

PATIENT
  Sex: Female

DRUGS (2)
  1. METFORMIN [Concomitant]
     Indication: DIABETES MELLITUS
     Dosage: 500 MG, UNK
     Route: 048
     Dates: start: 20110201
  2. ZYPADHERA [Suspect]
     Dosage: 210 MG, 2/W
     Dates: start: 20110216

REACTIONS (3)
  - FATIGUE [None]
  - SOMNOLENCE [None]
  - INJECTION SITE EXTRAVASATION [None]
